FAERS Safety Report 11500868 (Version 1)
Quarter: 2015Q3

REPORT INFORMATION
  Report Type: Spontaneous
  Country: CA (occurrence: CA)
  Receive Date: 20150914
  Receipt Date: 20150914
  Transmission Date: 20151125
  Serious: Yes (Hospitalization, Other)
  Sender: FDA-Public Use
  Company Number: CA-TEVA-592606USA

PATIENT
  Age: 16 Year
  Sex: Female

DRUGS (1)
  1. OLANZAPINE. [Suspect]
     Active Substance: OLANZAPINE
     Indication: WEIGHT DECREASED
     Dosage: 2.5MG DAILY, INCREASED BY THE SAME INCREMENT OVER 1 MONTH
     Route: 065

REACTIONS (1)
  - Atrioventricular block first degree [Recovered/Resolved]
